FAERS Safety Report 14444508 (Version 2)
Quarter: 2018Q1

REPORT INFORMATION
  Report Type: Other
  Country: ES (occurrence: ES)
  Receive Date: 20180126
  Receipt Date: 20180320
  Transmission Date: 20180509
  Serious: Yes (Life-Threatening, Hospitalization, Other)
  Sender: FDA-Public Use
  Company Number: ES-MACLEODS PHARMACEUTICALS US LTD-MAC2018008831

PATIENT

DRUGS (4)
  1. DICLOFENAC [Interacting]
     Active Substance: DICLOFENAC
     Indication: PAIN
     Dosage: 150 MG, QD
     Route: 048
     Dates: start: 20160608, end: 20160616
  2. CLOPIDOGREL [Suspect]
     Active Substance: CLOPIDOGREL BISULFATE
     Indication: PRODUCT USED FOR UNKNOWN INDICATION
     Dosage: 75 MG, QD
     Route: 048
     Dates: start: 201503
  3. ALDOCUMAR 1 MG TABLETS [Interacting]
     Active Substance: WARFARIN SODIUM
     Indication: PRODUCT USED FOR UNKNOWN INDICATION
     Dosage: 1 MG, TABLETS (40 TABLETS)
     Route: 048
     Dates: start: 2003, end: 20160622
  4. ALDOCUMAR 1 MG TABLETS [Interacting]
     Active Substance: WARFARIN SODIUM
     Dosage: UNK, TABLET
     Route: 048

REACTIONS (2)
  - Upper gastrointestinal haemorrhage [Recovered/Resolved]
  - Drug interaction [Recovered/Resolved]

NARRATIVE: CASE EVENT DATE: 20160622
